FAERS Safety Report 22370559 (Version 1)
Quarter: 2023Q2

REPORT INFORMATION
  Report Type: Spontaneous
  Country: US (occurrence: US)
  Receive Date: 20230526
  Receipt Date: 20230526
  Transmission Date: 20230722
  Serious: No
  Sender: FDA-Public Use
  Company Number: US-SA-SAC20230525001056

PATIENT
  Sex: Male

DRUGS (1)
  1. KEVZARA [Suspect]
     Active Substance: SARILUMAB
     Indication: Pyrexia
     Dosage: 200 MG, Q10D
     Route: 058

REACTIONS (4)
  - Myositis [Unknown]
  - Joint range of motion decreased [Unknown]
  - Abdominal pain [Unknown]
  - Product use in unapproved indication [Unknown]
